FAERS Safety Report 8011569-2 (Version None)
Quarter: 2011Q4

REPORT INFORMATION
  Report Type: 
  Country: None (occurrence: None)
  Receive Date: 20111228
  Receipt Date: 20111220
  Transmission Date: 20120403
  Serious: No
  Sender: FDA-Public Use
  Company Number: US-PFIZER INC-2011294674

PATIENT
  Sex: Female
  Weight: 71.202 kg

DRUGS (4)
  1. KLONOPIN [Concomitant]
     Dosage: 0.5 MG, AS NEEDED
  2. CELEBREX [Suspect]
     Indication: MUSCULOSKELETAL PAIN
  3. CELEBREX [Suspect]
     Indication: NECK PAIN
     Dosage: 200 MG, DAILY
     Dates: start: 20111201, end: 20111202
  4. ATENOLOL [Concomitant]
     Indication: HYPERTENSION
     Dosage: 50 MG, DAILY

REACTIONS (3)
  - DYSPNOEA [None]
  - INSOMNIA [None]
  - CARDIAC DISCOMFORT [None]
